FAERS Safety Report 21773897 (Version 1)
Quarter: 2022Q4

REPORT INFORMATION
  Report Type: Report from Study
  Country: US (occurrence: US)
  Receive Date: 20221223
  Receipt Date: 20221223
  Transmission Date: 20230113
  Serious: Yes (Hospitalization, Other)
  Sender: FDA-Public Use
  Company Number: US-PFIZER INC-PV202200033858

PATIENT
  Age: 77 Year
  Sex: Female
  Weight: 72.6 kg

DRUGS (1)
  1. CRIZOTINIB [Suspect]
     Active Substance: CRIZOTINIB
     Dosage: 250 MG BID 28 DAYS CYCLE
     Route: 048
     Dates: start: 20211116, end: 20220622

REACTIONS (9)
  - Osteomyelitis [Recovering/Resolving]
  - Osteomyelitis [Recovering/Resolving]
  - Muscular weakness [Recovering/Resolving]
  - Blood creatine phosphokinase increased [Recovering/Resolving]
  - Chronic kidney disease [Recovering/Resolving]
  - Sepsis [Recovering/Resolving]
  - Hypoxia [Recovering/Resolving]
  - Anaemia [Recovering/Resolving]
  - Back pain [Recovering/Resolving]

NARRATIVE: CASE EVENT DATE: 20220713
